FAERS Safety Report 21877563 (Version 1)
Quarter: 2023Q1

REPORT INFORMATION
  Report Type: Spontaneous
  Country: US (occurrence: US)
  Receive Date: 20230118
  Receipt Date: 20230118
  Transmission Date: 20230417
  Serious: Yes (Hospitalization, Other)
  Sender: FDA-Public Use
  Company Number: US-SA-SAC20230116000785

PATIENT
  Sex: Male

DRUGS (2)
  1. AUBAGIO [Suspect]
     Active Substance: TERIFLUNOMIDE
     Indication: Multiple sclerosis
     Dosage: UNK
     Route: 065
  2. VUMERITY [Suspect]
     Active Substance: DIROXIMEL FUMARATE
     Dosage: UNK UNK, BID

REACTIONS (4)
  - Multiple sclerosis relapse [Unknown]
  - Multiple sclerosis pseudo relapse [Unknown]
  - Dizziness [Unknown]
  - Feeling drunk [Unknown]
